FAERS Safety Report 8360812-9 (Version None)
Quarter: 2012Q2

REPORT INFORMATION
  Report Type: 
  Country: None (occurrence: None)
  Receive Date: 20120515
  Receipt Date: 20120510
  Transmission Date: 20120825
  Serious: Yes (Other)
  Sender: FDA-Public Use
  Company Number: DE-GILEAD-2011-0042081

PATIENT
  Sex: Female

DRUGS (2)
  1. NUTRIFEM [Concomitant]
     Indication: VITAMIN SUPPLEMENTATION
  2. VIREAD [Suspect]
     Indication: HEPATITIS B

REACTIONS (3)
  - UMBILICAL CORD ABNORMALITY [None]
  - PREGNANCY [None]
  - VASA PRAEVIA [None]
